FAERS Safety Report 5223705-1 (Version None)
Quarter: 2007Q1

REPORT INFORMATION
  Report Type: 
  Country: None (occurrence: None)
  Receive Date: 20070130
  Receipt Date: 20070119
  Transmission Date: 20070707
  Serious: Yes (Hospitalization, Other)
  Sender: FDA-Public Use
  Company Number: BE-JNJFOC-20070101607

PATIENT
  Age: 57 Year
  Sex: Male

DRUGS (12)
  1. REMICADE [Suspect]
     Indication: ANKYLOSING SPONDYLITIS
     Route: 042
  2. APROVEL [Concomitant]
     Route: 065
  3. BISOPROLOL FUMARATE [Concomitant]
     Route: 065
  4. SIMVASTATIN [Concomitant]
     Route: 065
  5. ASAFLOW [Concomitant]
     Route: 065
  6. ZOLPIDEM TARTRATE [Concomitant]
     Route: 065
  7. FRAXI [Concomitant]
     Route: 065
  8. SODIUM CHLORIDE [Concomitant]
     Route: 065
  9. LEDERMYCIN [Concomitant]
     Route: 065
  10. MEDROL [Concomitant]
     Route: 065
  11. LITICAN [Concomitant]
     Route: 065
  12. EMCONCOR [Concomitant]
     Route: 065

REACTIONS (8)
  - BRONCHIAL CARCINOMA [None]
  - CONFUSIONAL STATE [None]
  - HYPONATRAEMIA [None]
  - INAPPROPRIATE ANTIDIURETIC HORMONE SECRETION [None]
  - INSOMNIA [None]
  - MENTAL DISORDER [None]
  - PANCYTOPENIA [None]
  - RESTLESSNESS [None]
